FAERS Safety Report 7495376-5 (Version None)
Quarter: 2011Q2

REPORT INFORMATION
  Report Type: 
  Country: None (occurrence: None)
  Receive Date: 20110523
  Receipt Date: 20110518
  Transmission Date: 20111010
  Serious: Yes (Hospitalization, Other)
  Sender: FDA-Public Use
  Company Number: NO-BRISTOL-MYERS SQUIBB COMPANY-15058621

PATIENT
  Age: 57 Year
  Sex: Male

DRUGS (11)
  1. METOPROLOL TARTRATE [Suspect]
  2. METFORMIN HCL [Suspect]
     Indication: TYPE 2 DIABETES MELLITUS
     Dosage: INCREASED DOSE SINCE 2004, METFORMIN 1G AT BREAKFAST AND 0.5-1G AT SUPPER.
     Dates: start: 19990101
  3. RAMIPRIL [Suspect]
  4. CLOPIDOGREL BISULFATE [Suspect]
  5. ASPIRIN [Suspect]
  6. ALCOHOL [Suspect]
  7. LANSOPRAZOLE [Suspect]
  8. GLIPIZIDE [Suspect]
     Indication: TYPE 2 DIABETES MELLITUS
  9. ISOSORBIDE MONONITRATE [Suspect]
  10. GLIMEPIRIDE [Suspect]
  11. ATORVASTATIN [Suspect]

REACTIONS (10)
  - HYPOMAGNESAEMIA [None]
  - HYPERGLYCAEMIA [None]
  - HYPOCALCAEMIA [None]
  - MUSCLE SPASMS [None]
  - PAIN [None]
  - MALAISE [None]
  - HYPERTENSION [None]
  - DIARRHOEA [None]
  - HYPOKALAEMIA [None]
  - PARAESTHESIA [None]
